FAERS Safety Report 8178629-7 (Version None)
Quarter: 2012Q1

REPORT INFORMATION
  Report Type: 
  Country: None (occurrence: None)
  Receive Date: 20120301
  Receipt Date: 20120229
  Transmission Date: 20120608
  Serious: Yes (Life-Threatening, Hospitalization)
  Sender: FDA-Public Use
  Company Number: NL-MERCK-1202NLD00022

PATIENT
  Age: 71 Year
  Sex: Female
  Weight: 120 kg

DRUGS (8)
  1. CAPTOPRIL [Concomitant]
     Route: 048
  2. AMLODIPINE MALEATE [Concomitant]
     Route: 048
  3. METFORMIN [Concomitant]
     Route: 048
  4. FUROSEMIDE [Concomitant]
     Route: 065
  5. ASPIRIN [Concomitant]
     Route: 048
  6. ZOCOR [Suspect]
     Indication: DYSLIPIDAEMIA
     Route: 048
     Dates: end: 20120209
  7. GEMFIBROZIL [Suspect]
     Indication: DYSLIPIDAEMIA
     Route: 048
     Dates: start: 20110701, end: 20120209
  8. PANTOPRAZOLE [Concomitant]
     Route: 048

REACTIONS (2)
  - RHABDOMYOLYSIS [None]
  - RENAL FAILURE ACUTE [None]
